FAERS Safety Report 21705269 (Version 3)
Quarter: 2023Q1

REPORT INFORMATION
  Report Type: Report from Study
  Country: IE (occurrence: IE)
  Receive Date: 20221209
  Receipt Date: 20230315
  Transmission Date: 20230418
  Serious: Yes (Other)
  Sender: FDA-Public Use
  Company Number: IE-AstraZeneca-2022A399917

PATIENT
  Age: 23 Month
  Sex: Male

DRUGS (5)
  1. SYNAGIS [Suspect]
     Active Substance: PALIVIZUMAB
     Indication: Premature baby
     Dosage: AFTER 28 DAYS15.0MG/KG UNKNOWN
     Route: 030
     Dates: start: 20221202
  2. SYNAGIS [Suspect]
     Active Substance: PALIVIZUMAB
     Dosage: AFTER 28 DAYS15.0MG/KG UNKNOWN
     Route: 030
     Dates: start: 20230102
  3. SYNAGIS [Suspect]
     Active Substance: PALIVIZUMAB
     Dosage: AFTER 28 DAYS15.0MG/KG UNKNOWN
     Route: 030
     Dates: start: 20230202
  4. BECLOMETHASONE DIPROPIONATE [Concomitant]
     Active Substance: BECLOMETHASONE DIPROPIONATE
     Dosage: 1 MG
  5. VENTOLIN [Concomitant]
     Active Substance: ALBUTEROL SULFATE
     Dosage: 1 MG

REACTIONS (9)
  - Febrile convulsion [Unknown]
  - Rhinorrhoea [Recovered/Resolved]
  - Cough [Recovered/Resolved]
  - Off label use [Unknown]
  - Urinary tract infection [Unknown]
  - Pyrexia [Recovered/Resolved]
  - Respiratory syncytial virus infection [Recovered/Resolved]
  - Bronchiolitis [Recovered/Resolved]
  - Chest discomfort [Recovered/Resolved]

NARRATIVE: CASE EVENT DATE: 20230128
